FAERS Safety Report 4595585-9 (Version None)
Quarter: 2005Q1

REPORT INFORMATION
  Report Type: 
  Country: None (occurrence: None)
  Receive Date: 20050228
  Receipt Date: 20050228
  Transmission Date: 20050727
  Serious: Yes (Hospitalization)
  Sender: FDA-Public Use
  Company Number: None

PATIENT
  Age: 44 Year
  Sex: Male
  Weight: 117.9352 kg

DRUGS (2)
  1. LAMICTAL [Suspect]
     Indication: BIPOLAR DISORDER
     Dosage: 1 QD PO
     Route: 048
     Dates: start: 20050114
  2. PAXIL CR [Suspect]
     Indication: DEPRESSION
     Dosage: 1 QD
     Dates: start: 20050114

REACTIONS (1)
  - RASH [None]
